FAERS Safety Report 25934811 (Version 2)
Quarter: 2025Q4

REPORT INFORMATION
  Report Type: Spontaneous
  Country: CA (occurrence: CA)
  Receive Date: 20251017
  Receipt Date: 20251216
  Transmission Date: 20260117
  Serious: Yes (Other)
  Sender: RANBAXY
  Company Number: US-SUN PHARMACEUTICAL INDUSTRIES LTD-2025R1-532192

PATIENT
  Age: 15 Year
  Sex: Female

DRUGS (7)
  1. AMITRIPTYLINE [Suspect]
     Active Substance: AMITRIPTYLINE
     Indication: Systemic scleroderma
     Dosage: UNK
     Route: 065
  2. CELECOXIB [Suspect]
     Active Substance: CELECOXIB
     Indication: Systemic scleroderma
     Dosage: UNK
     Route: 065
  3. CLONIDINE [Suspect]
     Active Substance: CLONIDINE
     Indication: Systemic scleroderma
     Dosage: UNK
     Route: 065
  4. GABAPENTIN [Suspect]
     Active Substance: GABAPENTIN
     Indication: Systemic scleroderma
     Dosage: UNK
     Route: 065
  5. MAGNESIUM [Suspect]
     Active Substance: MAGNESIUM
     Indication: Systemic scleroderma
     Dosage: UNK
     Route: 065
  6. HYDROMORPHONE HCL [Suspect]
     Active Substance: HYDROMORPHONE HYDROCHLORIDE
     Indication: Systemic scleroderma
     Dosage: UNK
     Route: 065
  7. KETAMINE [Suspect]
     Active Substance: KETAMINE
     Indication: Systemic scleroderma
     Dosage: UNK
     Route: 065

REACTIONS (1)
  - Therapy non-responder [Unknown]
